FAERS Safety Report 20121303 (Version 1)
Quarter: 2021Q4

REPORT INFORMATION
  Report Type: Spontaneous
  Country: US (occurrence: None)
  Receive Date: 20211124
  Receipt Date: 20211124
  Transmission Date: 20220303
  Serious: Yes (Hospitalization)
  Sender: FDA-Public Use
  Company Number: None

PATIENT
  Sex: Female

DRUGS (1)
  1. NEUPOGEN [Suspect]
     Active Substance: FILGRASTIM
     Indication: Acute myeloid leukaemia
     Dosage: OTHER STRENGTH : 300UGM;?FREQUENCY : DAILY;?
     Route: 058
     Dates: start: 20210804

REACTIONS (4)
  - White blood cell count decreased [None]
  - Haemoglobin decreased [None]
  - Red blood cell count decreased [None]
  - Platelet count decreased [None]
